FAERS Safety Report 7071386-7 (Version None)
Quarter: 2010Q4

REPORT INFORMATION
  Report Type: 
  Country: None (occurrence: None)
  Receive Date: 20101029
  Receipt Date: 20101026
  Transmission Date: 20110411
  Serious: No
  Sender: FDA-Public Use
  Company Number: US-TEVA-253175USA

PATIENT
  Sex: Female
  Weight: 56.75 kg

DRUGS (2)
  1. AZILECT [Suspect]
     Indication: PARKINSON'S DISEASE
     Route: 048
     Dates: start: 20090401
  2. SINEMET [Concomitant]

REACTIONS (1)
  - DYSPNOEA [None]
